FAERS Safety Report 5632082-3 (Version None)
Quarter: 2008Q1

REPORT INFORMATION
  Report Type: 
  Country: None (occurrence: None)
  Receive Date: 20080220
  Receipt Date: 20080215
  Transmission Date: 20080703
  Serious: Yes (Disabling)
  Sender: FDA-Public Use
  Company Number: B0499365A

PATIENT
  Age: 47 Year
  Sex: Female

DRUGS (10)
  1. FLUTIDE [Suspect]
     Indication: ASTHMA
     Route: 055
     Dates: start: 20060726, end: 20071207
  2. SEREVENT [Concomitant]
     Indication: ASTHMA
     Dosage: 100MCG PER DAY
     Route: 055
     Dates: start: 20061128, end: 20071207
  3. CETIRIZINE HCL [Concomitant]
     Dosage: 10MCG PER DAY
     Route: 048
     Dates: start: 20070811, end: 20071207
  4. MEPTIN AIR [Concomitant]
     Indication: ASTHMA
     Route: 055
     Dates: start: 20070110
  5. ZYRTEC [Concomitant]
     Dosage: 10MG PER DAY
     Route: 048
     Dates: start: 20061111, end: 20070810
  6. UNKNOWN DRUG [Concomitant]
     Indication: ASTHMA
     Dosage: 750MG PER DAY
     Route: 048
     Dates: start: 20060920, end: 20071207
  7. ALUSA [Concomitant]
     Indication: GASTRITIS
     Route: 048
     Dates: start: 20070908, end: 20071014
  8. CHINESE MEDICINE [Concomitant]
     Indication: ENTEROCOLITIS
     Dosage: 7.5G PER DAY
     Route: 048
     Dates: start: 20070908, end: 20070915
  9. CHINESE MEDICINE [Concomitant]
     Indication: NASOPHARYNGITIS
     Dosage: 7.5G PER DAY
     Route: 048
     Dates: start: 20070908, end: 20070913
  10. UNKNOWN DRUG [Concomitant]
     Route: 048
     Dates: start: 20070303, end: 20070330

REACTIONS (2)
  - OSTEOARTHRITIS [None]
  - OSTEONECROSIS [None]
